FAERS Safety Report 24125757 (Version 1)
Quarter: 2024Q3

REPORT INFORMATION
  Report Type: Spontaneous
  Country: CL (occurrence: CL)
  Receive Date: 20240723
  Receipt Date: 20240723
  Transmission Date: 20241017
  Serious: Yes (Other)
  Sender: NOVARTIS
  Company Number: CL-002147023-NVSC2022CL304829

PATIENT
  Sex: Female

DRUGS (5)
  1. IMATINIB [Suspect]
     Active Substance: IMATINIB
     Indication: Chronic myeloid leukaemia
     Dosage: 400 MG, QD
     Route: 048
  2. NILOTINIB [Suspect]
     Active Substance: NILOTINIB
     Indication: Chronic myeloid leukaemia
     Dosage: UNK
     Route: 065
     Dates: start: 201501
  3. NILOTINIB [Suspect]
     Active Substance: NILOTINIB
     Dosage: 200 MG, QD (DAILY)
     Route: 065
     Dates: end: 20171201
  4. BOSUTINIB [Suspect]
     Active Substance: BOSUTINIB
     Indication: Chronic myeloid leukaemia
     Dosage: UNK
     Route: 065
  5. DASATINIB [Suspect]
     Active Substance: DASATINIB
     Indication: Chronic myeloid leukaemia
     Dosage: 50 MG
     Route: 065
     Dates: start: 202009

REACTIONS (4)
  - Cytopenia [Not Recovered/Not Resolved]
  - Rash [Unknown]
  - Therapy non-responder [Unknown]
  - Off label use [Unknown]
